FAERS Safety Report 14354511 (Version 2)
Quarter: 2018Q1

REPORT INFORMATION
  Report Type: Report from Study
  Country: FR (occurrence: FR)
  Receive Date: 20180105
  Receipt Date: 20180130
  Transmission Date: 20180509
  Serious: Yes (Other)
  Sender: FDA-Public Use
  Company Number: PHHO2017FR017455

PATIENT
  Age: 24 Year
  Sex: Male
  Weight: 82 kg

DRUGS (3)
  1. PEGASYS [Suspect]
     Active Substance: PEGINTERFERON ALFA-2A
     Indication: CHRONIC MYELOID LEUKAEMIA
     Dosage: 30 UG (EVERY 14 DAYS)
     Route: 065
     Dates: start: 20151217
  2. TRAMADOL. [Concomitant]
     Active Substance: TRAMADOL
     Indication: PRODUCT USED FOR UNKNOWN INDICATION
     Dosage: UNK
     Route: 065
     Dates: end: 20170413
  3. AMN107 [Suspect]
     Active Substance: NILOTINIB
     Indication: CHRONIC MYELOID LEUKAEMIA
     Dosage: 300 MG, BID
     Route: 048
     Dates: start: 20160114, end: 20161111

REACTIONS (1)
  - Peritonsillar abscess [Recovered/Resolved]

NARRATIVE: CASE EVENT DATE: 20170411
